FAERS Safety Report 21208037 (Version 1)
Quarter: 2022Q3

REPORT INFORMATION
  Report Type: Spontaneous
  Country: US (occurrence: None)
  Receive Date: 20220811
  Receipt Date: 20220811
  Transmission Date: 20221027
  Serious: Yes (Death)
  Sender: FDA-Public Use
  Company Number: None

PATIENT
  Age: 60 Year
  Sex: Male

DRUGS (2)
  1. EVEROLIMUS [Suspect]
     Active Substance: EVEROLIMUS
     Indication: Renal cancer
     Dosage: 5MG DALY ORAL
     Route: 048
     Dates: start: 20220519, end: 20220811
  2. LENVIMA [Concomitant]
     Active Substance: LENVATINIB

REACTIONS (1)
  - Death [None]

NARRATIVE: CASE EVENT DATE: 20220811
